FAERS Safety Report 6825442-6 (Version None)
Quarter: 2010Q3

REPORT INFORMATION
  Report Type: 
  Country: None (occurrence: None)
  Receive Date: 20100708
  Receipt Date: 20061128
  Transmission Date: 20110219
  Serious: No
  Sender: FDA-Public Use
  Company Number: US-PFIZER INC-2006148898

PATIENT
  Sex: Female
  Weight: 54.43 kg

DRUGS (6)
  1. CHANTIX [Suspect]
     Indication: SMOKING CESSATION THERAPY
     Dates: start: 20060912
  2. LEVOXYL [Concomitant]
  3. ALBUTEROL [Concomitant]
     Route: 055
  4. LEXAPRO [Concomitant]
  5. KLONOPIN [Concomitant]
  6. NEURONTIN [Concomitant]

REACTIONS (1)
  - DRUG INEFFECTIVE [None]
